FAERS Safety Report 8988726 (Version 1)
Quarter: 2012Q4

REPORT INFORMATION
  Report Type: Report from Study
  Country: FR (occurrence: FR)
  Receive Date: 20121228
  Receipt Date: 20121228
  Transmission Date: 20130627
  Serious: Yes (Hospitalization)
  Sender: FDA-Public Use
  Company Number: FR-ROCHE-1170275

PATIENT
  Age: 76 Year
  Sex: Male
  Weight: 57 kg

DRUGS (11)
  1. RITUXIMAB [Suspect]
     Indication: CHRONIC LYMPHOCYTIC LEUKAEMIA
     Route: 065
     Dates: start: 20081216
  2. FLUDARABINE [Suspect]
     Indication: CHRONIC LYMPHOCYTIC LEUKAEMIA
     Route: 065
  3. CYCLOPHOSPHAMIDE [Suspect]
     Indication: CHRONIC LYMPHOCYTIC LEUKAEMIA
     Route: 065
  4. FILGRASTIM [Concomitant]
     Indication: CHRONIC LYMPHOCYTIC LEUKAEMIA
     Route: 065
  5. AMLOR [Concomitant]
  6. KARDEGIC [Concomitant]
  7. LEXOMIL [Concomitant]
  8. FUMAFER [Concomitant]
  9. DUROGESIC [Concomitant]
  10. BACTRIM [Concomitant]
  11. ZELITREX [Concomitant]

REACTIONS (2)
  - General physical condition abnormal [Recovered/Resolved]
  - Anaemia [Recovered/Resolved]
